FAERS Safety Report 4558320-6 (Version None)
Quarter: 2005Q1

REPORT INFORMATION
  Report Type: 
  Country: None (occurrence: None)
  Receive Date: 20050103
  Receipt Date: 20041001
  Transmission Date: 20050727
  Serious: Yes (Other)
  Sender: FDA-Public Use
  Company Number: 2004UW20702

PATIENT
  Age: 74 Year
  Sex: Female
  Weight: 95.2554 kg

DRUGS (6)
  1. CRESTOR [Suspect]
     Indication: HYPERCHOLESTEROLAEMIA
     Dosage: 10 MG PO
     Route: 048
     Dates: start: 20040929
  2. PLAVIX [Concomitant]
  3. METOPROLOL [Concomitant]
  4. ENALAPRIL MALEATE [Concomitant]
  5. ISOSORBIDE [Concomitant]
  6. NITROGLYCERIN [Concomitant]

REACTIONS (3)
  - DIZZINESS [None]
  - MUSCULOSKELETAL STIFFNESS [None]
  - NECK PAIN [None]
